FAERS Safety Report 26124109 (Version 2)
Quarter: 2025Q4

REPORT INFORMATION
  Report Type: Spontaneous
  Country: GB (occurrence: GB)
  Receive Date: 20251205
  Receipt Date: 20251224
  Transmission Date: 20260118
  Serious: Yes (Life-Threatening, Hospitalization)
  Sender: TEVA
  Company Number: GB-RP-047752

PATIENT
  Age: 71 Year
  Sex: Male

DRUGS (7)
  1. ATORVASTATIN [Suspect]
     Active Substance: ATORVASTATIN
     Indication: Hypercholesterolaemia
     Route: 065
  2. Immunoglobulin [Concomitant]
     Indication: Product used for unknown indication
     Dosage: FORMOTEROL FUMARATE DIHYDRATE (DUORESP SPIROMAX) INHALER
     Route: 042
  3. MYCOPHENOLATE MOFETIL [Concomitant]
     Active Substance: MYCOPHENOLATE MOFETIL
     Indication: Product used for unknown indication
     Route: 065
  4. MONTELUKAST [Concomitant]
     Active Substance: MONTELUKAST
     Indication: Product used for unknown indication
     Route: 065
  5. METHYLPREDNISOLONE [Concomitant]
     Active Substance: METHYLPREDNISOLONE
     Indication: Product used for unknown indication
     Route: 042
  6. PREDNISOLONE [Concomitant]
     Active Substance: PREDNISOLONE
     Indication: Product used for unknown indication
     Route: 048
  7. PREDNISOLONE [Concomitant]
     Active Substance: PREDNISOLONE
     Indication: Product used for unknown indication
     Dosage: TAPERED 5 MG EVERY SEVEN-DAY INTERVAL
     Route: 048

REACTIONS (7)
  - Lower respiratory tract infection [Unknown]
  - Antibody test positive [Unknown]
  - Atrial fibrillation [Unknown]
  - Immune-mediated myositis [Unknown]
  - Pneumonia aspiration [Unknown]
  - Dysphagia [Unknown]
  - Respiratory failure [Unknown]
